FAERS Safety Report 8200911-5 (Version None)
Quarter: 2012Q1

REPORT INFORMATION
  Report Type: 
  Country: None (occurrence: None)
  Receive Date: 20120312
  Receipt Date: 20110805
  Transmission Date: 20120608
  Serious: No
  Sender: FDA-Public Use
  Company Number: US-ABBOTT-11P-163-0844348-00

PATIENT
  Sex: Female
  Weight: 59.02 kg

DRUGS (5)
  1. PROPRANOLOL [Concomitant]
     Indication: HYPERTENSION
  2. WELLBUTRIN [Concomitant]
     Indication: DEPRESSION
  3. UNKNOWN MEDICATION [Concomitant]
     Indication: DEPRESSION
  4. NEURONTIN [Concomitant]
     Indication: NEUROPATHY PERIPHERAL
  5. LUPRON DEPOT [Suspect]
     Indication: ENDOMETRIOSIS
     Route: 030
     Dates: start: 20110515

REACTIONS (4)
  - HOT FLUSH [None]
  - ABDOMINAL PAIN [None]
  - FEELING COLD [None]
  - MOOD SWINGS [None]
